FAERS Safety Report 24767621 (Version 1)
Quarter: 2024Q4

REPORT INFORMATION
  Report Type: Spontaneous
  Country: US (occurrence: None)
  Receive Date: 20241221
  Receipt Date: 20241221
  Transmission Date: 20250114
  Serious: Yes (Disabling)
  Sender: Public
  Company Number: None

PATIENT
  Age: 29 Year
  Sex: Male
  Weight: 126 kg

DRUGS (2)
  1. SUBOXONE [Suspect]
     Active Substance: BUPRENORPHINE HYDROCHLORIDE\NALOXONE HYDROCHLORIDE
     Indication: Drug use disorder
     Dosage: 30 FILM SUBLINGUAL ?
     Route: 060
  2. BUPRENORPHINE [Suspect]
     Active Substance: BUPRENORPHINE

REACTIONS (3)
  - Gingival recession [None]
  - Dental caries [None]
  - Therapy cessation [None]

NARRATIVE: CASE EVENT DATE: 20180101
